FAERS Safety Report 21777099 (Version 2)
Quarter: 2024Q3

REPORT INFORMATION
  Report Type: Spontaneous
  Country: IT (occurrence: IT)
  Receive Date: 20221226
  Receipt Date: 20240806
  Transmission Date: 20241016
  Serious: Yes (Other)
  Sender: RECORDATI
  Company Number: IT-RECORDATI-2022006884

PATIENT

DRUGS (4)
  1. OSILODROSTAT [Suspect]
     Active Substance: OSILODROSTAT
     Indication: Pituitary-dependent Cushing^s syndrome
     Dosage: 1 MILLIGRAM, BID
     Dates: start: 202103, end: 2021
  2. OSILODROSTAT [Suspect]
     Active Substance: OSILODROSTAT
     Dosage: PROGRESSIVELY UP-TITRATED TO 5 MILLIGRAM, BID
     Dates: start: 202106
  3. CORTISONE ACETATE [Suspect]
     Active Substance: CORTISONE ACETATE
     Indication: Prophylaxis
     Dosage: 37.5 MILLIGRAM, QD
     Dates: start: 202110
  4. CORTISONE ACETATE [Suspect]
     Active Substance: CORTISONE ACETATE
     Dosage: 25 MILLIGRAM, QD

REACTIONS (1)
  - Adrenal insufficiency [Unknown]
